FAERS Safety Report 4498725-5 (Version None)
Quarter: 2004Q4

REPORT INFORMATION
  Report Type: 
  Country: None (occurrence: None)
  Receive Date: 20041108
  Receipt Date: 20041101
  Transmission Date: 20050328
  Serious: Yes (Death)
  Sender: FDA-Public Use
  Company Number: 2004UW22508

PATIENT
  Sex: Male

DRUGS (2)
  1. SEROQUEL [Suspect]
  2. ALPRAZOLAM [Suspect]

REACTIONS (2)
  - DRUG TOXICITY [None]
  - VICTIM OF HOMICIDE [None]
